FAERS Safety Report 15920821 (Version 2)
Quarter: 2019Q1

REPORT INFORMATION
  Report Type: Spontaneous
  Country: US (occurrence: US)
  Receive Date: 20190205
  Receipt Date: 20190206
  Transmission Date: 20190417
  Serious: No
  Sender: FDA-Public Use
  Company Number: US-009507513-1902USA001530

PATIENT
  Age: 37 Year
  Sex: Male
  Weight: 126.98 kg

DRUGS (1)
  1. TICE BCG [Suspect]
     Active Substance: BACILLUS CALMETTE-GUERIN SUBSTRAIN TICE LIVE ANTIGEN
     Indication: BLADDER CANCER
     Dosage: (ONE VIA VESICAL) FREQUENCY: 1X WEEK X 6 WEEKS THEN 1 MONTHLY X 4 MONTHS
     Route: 043
     Dates: start: 20190122

REACTIONS (2)
  - Product dose omission [Unknown]
  - Product availability issue [Unknown]

NARRATIVE: CASE EVENT DATE: 20190122
